FAERS Safety Report 13268407 (Version 1)
Quarter: 2017Q1

REPORT INFORMATION
  Report Type: Spontaneous
  Country: IN (occurrence: IN)
  Receive Date: 20170224
  Receipt Date: 20170224
  Transmission Date: 20170428
  Serious: Yes (Other)
  Sender: FDA-Public Use
  Company Number: IN-ASTRAZENECA-2017SE18346

PATIENT
  Age: 50 Year
  Sex: Male

DRUGS (4)
  1. TICAGRELOR [Suspect]
     Active Substance: TICAGRELOR
     Indication: ACUTE MYOCARDIAL INFARCTION
     Dosage: 180.0MG UNKNOWN
     Route: 048
  2. ASPIRIN. [Concomitant]
     Active Substance: ASPIRIN
     Indication: ACUTE MYOCARDIAL INFARCTION
     Dosage: 325.0MG UNKNOWN
  3. ATORVASTATIN [Concomitant]
     Active Substance: ATORVASTATIN
     Dosage: 80.0MG UNKNOWN
  4. RETEPLASE [Interacting]
     Active Substance: RETEPLASE
     Indication: FIBRINOLYSIS
     Dosage: 10 UNITS OVER 2 MINUTES FOLLOWED BY SECOND DOSE AFTER 30 MINUTES-(FOR TOTAL CUMULATIVE DOSE OF 20...
     Route: 040

REACTIONS (2)
  - Retroperitoneal haemorrhage [Recovered/Resolved]
  - Drug interaction [Unknown]
